FAERS Safety Report 22762849 (Version 4)
Quarter: 2024Q1

REPORT INFORMATION
  Report Type: Report from Study
  Country: CO (occurrence: CO)
  Receive Date: 20230728
  Receipt Date: 20240115
  Transmission Date: 20240410
  Serious: Yes (Death, Life-Threatening, Hospitalization, Other)
  Sender: FDA-Public Use
  Company Number: CO-IPSEN Group, Research and Development-2023-13434

PATIENT
  Age: 66 Year
  Sex: Female
  Weight: 73 kg

DRUGS (12)
  1. LANREOTIDE ACETATE [Suspect]
     Active Substance: LANREOTIDE ACETATE
     Indication: Acromegaly
     Dosage: 120 MG, EACH 30 DAYS
     Route: 058
     Dates: start: 20230425, end: 20230629
  2. LANREOTIDE ACETATE [Suspect]
     Active Substance: LANREOTIDE ACETATE
     Dosage: 120 MG, EACH 30 DAYS
     Route: 058
  3. ENALAPRIL [Concomitant]
     Active Substance: ENALAPRIL
     Indication: Hypertension
     Dosage: 20 MG, 1 TABLET EACH DAY, STARTED 40 YEARS AGO
     Route: 048
     Dates: end: 20230809
  4. ENALAPRIL [Concomitant]
     Active Substance: ENALAPRIL
     Dosage: 20 MG, 1 TABLET EACH DAY
     Route: 048
  5. CAPECITABINE [Concomitant]
     Active Substance: CAPECITABINE
     Indication: Palliative care
     Dosage: 750MG/M2, EACH 14 DAYS
     Route: 048
     Dates: start: 20230427, end: 20230510
  6. TEMOZOLOMIDE [Concomitant]
     Active Substance: TEMOZOLOMIDE
     Indication: Palliative care
     Dosage: 200MG/M2, EACH 14 DAYS
     Route: 048
     Dates: start: 20230427, end: 20230510
  7. LEVOTHYROXINE [Concomitant]
     Active Substance: LEVOTHYROXINE
     Indication: Thyroid disorder
     Dosage: 50 MG, 1 TABLET EVERY 24 HOURS, STARTED 20 YEARS AGO
     Route: 048
  8. LEVOTHYROXINE [Concomitant]
     Active Substance: LEVOTHYROXINE
     Indication: Hypothyroidism
     Dosage: 20 MG, 1 TABLET EACH DAY
     Route: 048
     Dates: end: 20230509
  9. LEVOTHYROXINE [Concomitant]
     Active Substance: LEVOTHYROXINE
     Dosage: 20 MG, 1 TABLET EACH DAY
     Route: 048
  10. HYDROCHLOROTHIAZIDE [Concomitant]
     Active Substance: HYDROCHLOROTHIAZIDE
     Indication: Fluid retention
     Dosage: 20 MG, 1 TABLET EACH DAY
     Route: 048
     Dates: end: 20230509
  11. HYDROCHLOROTHIAZIDE [Concomitant]
     Active Substance: HYDROCHLOROTHIAZIDE
     Dosage: 20 MG, 1 TABLET EACH DAY
     Route: 048
  12. METOCLOPRAMIDE [Concomitant]
     Active Substance: METOCLOPRAMIDE
     Indication: Nausea
     Dosage: EACH 8 HOURS
     Route: 048
     Dates: end: 20230509

REACTIONS (11)
  - Neoplasm malignant [Fatal]
  - Infrequent bowel movements [Recovering/Resolving]
  - Oedema [Not Recovered/Not Resolved]
  - Inflammation [Recovering/Resolving]
  - Peripheral swelling [Recovering/Resolving]
  - Abdominal pain upper [Not Recovered/Not Resolved]
  - Abdominal pain [Not Recovered/Not Resolved]
  - Peptic ulcer [Unknown]
  - Pulmonary pain [Unknown]
  - Lack of injection site rotation [Unknown]
  - Product dose omission issue [Unknown]

NARRATIVE: CASE EVENT DATE: 20230524
